FAERS Safety Report 7107429-1 (Version None)
Quarter: 2010Q4

REPORT INFORMATION
  Report Type: 
  Country: None (occurrence: None)
  Receive Date: 20101110
  Receipt Date: 20101108
  Transmission Date: 20110411
  Serious: Yes (Other)
  Sender: FDA-Public Use
  Company Number: 2010SP054574

PATIENT
  Age: 53 Year
  Sex: Female
  Weight: 55 kg

DRUGS (1)
  1. ORMIGREIN (ORMIGREIN /01755201/) [Suspect]
     Indication: MIGRAINE
     Dosage: ; PO
     Route: 048
     Dates: start: 19860101, end: 20101008

REACTIONS (1)
  - DRUG DEPENDENCE [None]
